FAERS Safety Report 5152237-4 (Version None)
Quarter: 2006Q4

REPORT INFORMATION
  Report Type: 
  Country: None (occurrence: None)
  Receive Date: 20061114
  Receipt Date: 20061114
  Transmission Date: 20070319
  Serious: Yes (Other)
  Sender: FDA-Public Use
  Company Number: None

PATIENT
  Sex: Female
  Weight: 83.9154 kg

DRUGS (1)
  1. DEXTROMETHORPHAN 10MG, GUAIFEN 100MG  COUGH FORMULA DM   TARGET [Suspect]
     Indication: COUGH
     Dosage: 2 TEASPOONFULLS  ONCE  PO
     Route: 048
     Dates: start: 20061111, end: 20061111

REACTIONS (3)
  - FEELING ABNORMAL [None]
  - MENTAL IMPAIRMENT [None]
  - VERTIGO [None]
